FAERS Safety Report 5296826-5 (Version None)
Quarter: 2007Q2

REPORT INFORMATION
  Report Type: 
  Country: None (occurrence: None)
  Receive Date: 20070413
  Receipt Date: 20070403
  Transmission Date: 20071010
  Serious: Yes (Other)
  Sender: FDA-Public Use
  Company Number: US-PFIZER INC-2007027704

PATIENT
  Sex: Female

DRUGS (5)
  1. AROMASIN [Suspect]
     Indication: BREAST CANCER FEMALE
     Route: 048
     Dates: start: 20050322, end: 20070214
  2. CALCIUM [Concomitant]
  3. ASCORBIC ACID [Concomitant]
  4. VITAMIN CAP [Concomitant]
  5. ACETYLSALICYLIC ACID SRT [Concomitant]

REACTIONS (4)
  - ALANINE AMINOTRANSFERASE INCREASED [None]
  - ASPARTATE AMINOTRANSFERASE INCREASED [None]
  - EOSINOPHILIA [None]
  - HEPATIC CYST [None]
